FAERS Safety Report 16641858 (Version 1)
Quarter: 2019Q3

REPORT INFORMATION
  Report Type: Spontaneous
  Country: US (occurrence: US)
  Receive Date: 20190726
  Receipt Date: 20190726
  Transmission Date: 20191004
  Serious: Yes (Life-Threatening, Hospitalization, Disabling, Other)
  Sender: FDA-Public Use
  Company Number: None

PATIENT
  Age: 69 Year
  Sex: Female
  Weight: 68.4 kg

DRUGS (1)
  1. LYMPHOSEEK [Suspect]
     Active Substance: TECHNETIUM TC-99M TILMANOCEPT
     Indication: IMAGING PROCEDURE

REACTIONS (4)
  - Skin discolouration [None]
  - Abdominal distension [None]
  - Rash [None]
  - Blood pressure decreased [None]

NARRATIVE: CASE EVENT DATE: 20190724
